FAERS Safety Report 7151683-7 (Version None)
Quarter: 2010Q4

REPORT INFORMATION
  Report Type: 
  Country: None (occurrence: None)
  Receive Date: 20101210
  Receipt Date: 20101130
  Transmission Date: 20110411
  Serious: Yes (Life-Threatening)
  Sender: FDA-Public Use
  Company Number: ES-BAYER-2010-002000

PATIENT
  Age: 79 Year
  Sex: Female

DRUGS (2)
  1. ASPIRINA 500 MG COMPRIMIDOS EFERVESCENTES [Suspect]
     Route: 048
     Dates: start: 20090101, end: 20100101
  2. ALOE VERA [Concomitant]

REACTIONS (1)
  - SHOCK HAEMORRHAGIC [None]
